FAERS Safety Report 8012033-7 (Version None)
Quarter: 2011Q4

REPORT INFORMATION
  Report Type: 
  Country: None (occurrence: None)
  Receive Date: 20111228
  Receipt Date: 20111220
  Transmission Date: 20120403
  Serious: Yes (Other)
  Sender: FDA-Public Use
  Company Number: JP-GLAXOSMITHKLINE-B0770889A

PATIENT
  Age: 16 Year
  Sex: Female

DRUGS (4)
  1. LAMICTAL [Suspect]
     Indication: EPILEPSY
     Dosage: 400MG PER DAY
     Route: 048
  2. DEPAKENE [Suspect]
     Indication: EPILEPSY
     Dosage: 400MG PER DAY
     Route: 048
  3. ETHOTOIN [Suspect]
     Indication: EPILEPSY
     Dosage: 800MG PER DAY
     Route: 048
  4. MYSTAN [Suspect]
     Indication: EPILEPSY
     Dosage: 20MG PER DAY
     Route: 048

REACTIONS (3)
  - BLOOD AMYLASE INCREASED [None]
  - BLOOD CHOLESTEROL INCREASED [None]
  - HIGH DENSITY LIPOPROTEIN INCREASED [None]
